FAERS Safety Report 21446764 (Version 3)
Quarter: 2022Q4

REPORT INFORMATION
  Report Type: Spontaneous
  Country: US (occurrence: US)
  Receive Date: 20221012
  Receipt Date: 20221020
  Transmission Date: 20230113
  Serious: No
  Sender: FDA-Public Use
  Company Number: US-PFIZER INC-202201221730

PATIENT
  Age: 79 Year
  Sex: Male
  Weight: 59.42 kg

DRUGS (4)
  1. VYNDAMAX [Suspect]
     Active Substance: TAFAMIDIS
     Indication: Cardiac failure
     Dosage: 1 DF, 1X/DAY
     Route: 048
     Dates: end: 20221008
  2. VYNDAMAX [Suspect]
     Active Substance: TAFAMIDIS
     Indication: Cardiac amyloidosis
  3. JARDIANCE [Concomitant]
     Active Substance: EMPAGLIFLOZIN
     Dosage: 10 MG
  4. JARDIANCE [Concomitant]
     Active Substance: EMPAGLIFLOZIN
     Dosage: 5 MG, 1X/DAY

REACTIONS (2)
  - Fluid retention [Recovering/Resolving]
  - Blood glucose decreased [Recovered/Resolved]
